FAERS Safety Report 7742010-2 (Version None)
Quarter: 2011Q3

REPORT INFORMATION
  Report Type: 
  Country: None (occurrence: None)
  Receive Date: 20110907
  Receipt Date: 20110907
  Transmission Date: 20111222
  Serious: No
  Sender: FDA-Public Use
  Company Number: None

PATIENT
  Age: 50 Year
  Sex: Male
  Weight: 77.928 kg

DRUGS (2)
  1. TAXOTERE [Concomitant]
  2. CARBOPLATIN [Suspect]
     Indication: SQUAMOUS CELL CARCINOMA
     Dosage: 360 MG
     Dates: start: 20110511, end: 20110902

REACTIONS (3)
  - UNEVALUABLE EVENT [None]
  - COUGH [None]
  - INFUSION RELATED REACTION [None]
